FAERS Safety Report 15744658 (Version 2)
Quarter: 2019Q1

REPORT INFORMATION
  Report Type: Spontaneous
  Country: ES (occurrence: ES)
  Receive Date: 20181220
  Receipt Date: 20190102
  Transmission Date: 20190417
  Serious: Yes (Life-Threatening, Hospitalization, Other)
  Sender: FDA-Public Use
  Company Number: ES-EMD SERONO-9058946

PATIENT
  Age: 37 Year
  Sex: Female

DRUGS (7)
  1. OVITRELLE [Suspect]
     Active Substance: CHORIOGONADOTROPIN ALFA
     Indication: OVULATION INDUCTION
     Dates: start: 20181124, end: 20181124
  2. PERGOVERIS [Suspect]
     Active Substance: FOLLITROPIN\LUTROPIN ALFA
     Indication: OVULATION INDUCTION
     Dosage: 2 VIALS, 300/150 IU
     Dates: start: 201811, end: 201811
  3. EUTHYROX [Concomitant]
     Active Substance: LEVOTHYROXINE SODIUM
     Indication: HYPOTHYROIDISM
  4. GONAL-F [Suspect]
     Active Substance: FOLLITROPIN
     Indication: OVULATION INDUCTION
     Dosage: FIRST CYCLE
     Dates: start: 201802, end: 2018
  5. EUTHYROX [Concomitant]
     Active Substance: LEVOTHYROXINE SODIUM
     Indication: OVARIAN DISORDER
  6. GONAL-F [Suspect]
     Active Substance: FOLLITROPIN
     Indication: OVARIAN DISORDER
     Dosage: SECOND CYCLE (GONAL F 1050)
     Dates: start: 20181114, end: 201811
  7. CETROTIDE [Suspect]
     Active Substance: CETRORELIX ACETATE
     Indication: OVULATION INDUCTION
     Dosage: ONE VIAL
     Dates: start: 201811, end: 201811

REACTIONS (4)
  - Procedural failure [Unknown]
  - Haemoglobin decreased [Unknown]
  - Syncope [Unknown]
  - Bone marrow toxicity [Unknown]

NARRATIVE: CASE EVENT DATE: 201811
